FAERS Safety Report 15661312 (Version 4)
Quarter: 2019Q3

REPORT INFORMATION
  Report Type: Spontaneous
  Country: US (occurrence: US)
  Receive Date: 20181127
  Receipt Date: 20190723
  Transmission Date: 20191004
  Serious: Yes (Hospitalization, Other)
  Sender: FDA-Public Use
  Company Number: PHEH2018US049014

PATIENT
  Sex: Female
  Weight: 75 kg

DRUGS (1)
  1. KISQALI [Suspect]
     Active Substance: RIBOCICLIB
     Indication: BREAST CANCER FEMALE
     Dosage: 600 MG, QD (200 MG, TID)
     Route: 048
     Dates: start: 20181026

REACTIONS (9)
  - Cough [Unknown]
  - Breast pain [Unknown]
  - Rash [Unknown]
  - White blood cell count decreased [Unknown]
  - Diarrhoea [Unknown]
  - Cellulitis [Unknown]
  - Chills [Unknown]
  - Abdominal pain upper [Unknown]
  - Rash macular [Unknown]
